FAERS Safety Report 24964294 (Version 1)
Quarter: 2025Q1

REPORT INFORMATION
  Report Type: Spontaneous
  Country: AU (occurrence: AU)
  Receive Date: 20250213
  Receipt Date: 20250213
  Transmission Date: 20250409
  Serious: Yes (Hospitalization, Other)
  Sender: AMGEN
  Company Number: AU-AMGEN-AUSSP2025025828

PATIENT
  Sex: Female

DRUGS (4)
  1. DARBEPOETIN ALFA [Suspect]
     Active Substance: DARBEPOETIN ALFA
     Indication: Nephrogenic anaemia
     Route: 065
  2. CINACALCET HYDROCHLORIDE [Suspect]
     Active Substance: CINACALCET HYDROCHLORIDE
     Indication: Hyperparathyroidism secondary
     Dosage: 60 MILLIGRAM, QD
     Route: 065
  3. WARFARIN [Concomitant]
     Active Substance: WARFARIN
     Dates: start: 2017
  4. IRON [Concomitant]
     Active Substance: IRON
     Indication: Nephrogenic anaemia

REACTIONS (8)
  - Hyperparathyroidism secondary [Unknown]
  - End stage renal disease [Unknown]
  - Post procedural haematoma [Unknown]
  - Postpartum haemorrhage [Unknown]
  - Premature delivery [Unknown]
  - Threatened labour [Unknown]
  - Amniotic cavity infection [Unknown]
  - Maternal exposure during pregnancy [Unknown]

NARRATIVE: CASE EVENT DATE: 20200101
